FAERS Safety Report 9099970 (Version 2)
Quarter: 2013Q1

REPORT INFORMATION
  Report Type: Spontaneous
  Country: US (occurrence: US)
  Receive Date: 20130215
  Receipt Date: 20130225
  Transmission Date: 20140127
  Serious: Yes (Other)
  Sender: FDA-Public Use
  Company Number: US-ELI_LILLY_AND_COMPANY-US201302002259

PATIENT
  Sex: Female

DRUGS (3)
  1. HUMALOG LISPRO [Suspect]
     Indication: TYPE 2 DIABETES MELLITUS
     Dosage: 12 U, PRN
     Route: 030
  2. HUMALOG LISPRO [Suspect]
     Dosage: 16 U, TID
  3. LANTUS [Concomitant]

REACTIONS (12)
  - Hernia [Unknown]
  - Colitis ulcerative [Unknown]
  - Kidney infection [Not Recovered/Not Resolved]
  - Blood glucose increased [Recovering/Resolving]
  - Renal cyst [Unknown]
  - Pain [Not Recovered/Not Resolved]
  - Underdose [Unknown]
  - Diabetic complication [Not Recovered/Not Resolved]
  - Injection site pain [Unknown]
  - Adverse event [Not Recovered/Not Resolved]
  - Impaired healing [Not Recovered/Not Resolved]
  - Incorrect route of drug administration [Not Recovered/Not Resolved]
